FAERS Safety Report 8766695 (Version 2)
Quarter: 2013Q1

REPORT INFORMATION
  Report Type: Spontaneous
  Country: US (occurrence: US)
  Receive Date: 20120904
  Receipt Date: 20130228
  Transmission Date: 20140127
  Serious: Yes (Hospitalization)
  Sender: FDA-Public Use
  Company Number: US-BAYER-2012-090628

PATIENT
  Age: 22 Year
  Sex: Female
  Weight: 77.1 kg

DRUGS (13)
  1. YASMIN [Suspect]
     Indication: DYSMENORRHOEA
     Dosage: UNK
     Dates: start: 20070607, end: 20080611
  2. OCELLA [Suspect]
     Indication: DYSMENORRHOEA
     Dosage: UNK
     Dates: start: 20070711, end: 20100123
  3. GLATIRAMER [Concomitant]
     Indication: MULTIPLE SCLEROSIS
     Dosage: UNK
     Dates: start: 20050509, end: 20110328
  4. POLYETHYLENE GLYCOL [Concomitant]
     Indication: CONSTIPATION
     Dosage: UNK
     Dates: start: 20071217, end: 20110707
  5. PHENTERMINE [Concomitant]
     Indication: MEDICAL DIET
     Dosage: UNK
     Dates: start: 20090413, end: 20091217
  6. PHENTERMINE [Concomitant]
     Indication: DECREASED APPETITE
     Dosage: UNK
     Dates: start: 20100203
  7. PHENTERMINE [Concomitant]
     Indication: MEDICAL DIET
     Dosage: UNK
     Dates: start: 20100304
  8. EXCEDRIN MIGRAINE [Concomitant]
     Dosage: UNK
     Dates: start: 20070723, end: 20110328
  9. TOPAMAX [Concomitant]
     Indication: MIGRAINE
     Dosage: UNK
     Dates: start: 20070723, end: 20110328
  10. CYANOCOBALAMIN [Concomitant]
     Indication: VITAMIN B12 DEFICIENCY
     Dosage: 10000 ?G/ML, UNK
     Route: 030
     Dates: start: 20071023, end: 20100816
  11. CYANOCOBALAMIN [Concomitant]
     Indication: ANAEMIA FOLATE DEFICIENCY
  12. CLINDAMYCIN [Concomitant]
     Dosage: 1 %, UNK
     Route: 061
     Dates: start: 20091206
  13. AMOXICILLIN [Concomitant]
     Dosage: UNK
     Dates: start: 20091208

REACTIONS (9)
  - Deep vein thrombosis [None]
  - Thrombosis [None]
  - Injury [None]
  - Pain [None]
  - Emotional distress [None]
  - General physical health deterioration [None]
  - Anxiety [None]
  - Pain [None]
  - Off label use [None]
